FAERS Safety Report 9236998 (Version 2)
Quarter: 2013Q2

REPORT INFORMATION
  Report Type: Spontaneous
  Country: IT (occurrence: None)
  Receive Date: 20130415
  Receipt Date: 20130418
  Transmission Date: 20140414
  Serious: Yes (Hospitalization)
  Sender: FDA-Public Use
  Company Number: AUR-APL-2013-03024

PATIENT
  Age: 54 Year
  Sex: Male

DRUGS (4)
  1. MIRTAZAPINE [Suspect]
     Indication: PRODUCT USED FOR UNKNOWN INDICATION
     Dosage: (13 DOSAGE FORMS, TOTAL),  ORAL
     Route: 048
     Dates: start: 20130330, end: 20130330
  2. RIVOTRIL (CLONAZEPAM) [Suspect]
     Dosage: (7 DOSAGE FORMS, TOTAL) , ORAL
     Route: 048
     Dates: start: 20130330, end: 20130330
  3. MICARDIS  (TELMISARTAN) [Concomitant]
     Dosage: (7 DOSAGE FORMS, TOTAL), ORAL
     Dates: start: 20130330, end: 20130330
  4. MODITEN DEPOT [Concomitant]

REACTIONS (4)
  - Intentional self-injury [None]
  - Somnolence [None]
  - Drug abuse [None]
  - Sopor [None]
